FAERS Safety Report 4728413-9 (Version None)
Quarter: 2005Q3

REPORT INFORMATION
  Report Type: 
  Country: None (occurrence: None)
  Receive Date: 20050729
  Receipt Date: 20040927
  Transmission Date: 20060218
  Serious: No
  Sender: FDA-Public Use
  Company Number: US-GLAXOSMITHKLINE-A0527413A

PATIENT
  Age: 3 Month
  Sex: Male

DRUGS (1)
  1. ZANTAC [Suspect]
     Dosage: 3CC TWICE PER DAY
     Route: 048
     Dates: start: 20040813, end: 20040927

REACTIONS (3)
  - MEDICATION ERROR [None]
  - NO ADVERSE EFFECT [None]
  - OVERDOSE [None]
